FAERS Safety Report 10572986 (Version 1)
Quarter: 2014Q4

REPORT INFORMATION
  Report Type: Spontaneous
  Country: US (occurrence: None)
  Receive Date: 20141106
  Receipt Date: 20141106
  Transmission Date: 20150529
  Serious: Yes (Hospitalization)
  Sender: FDA-Public Use
  Company Number: IMP_08024_2014

PATIENT
  Age: 13 Year
  Sex: Female

DRUGS (1)
  1. BUPROPION [Suspect]
     Active Substance: BUPROPION
     Indication: PRODUCT USED FOR UNKNOWN INDICATION
     Dosage: ([NOT THE PRESCRIBED DOSE])

REACTIONS (10)
  - Intentional overdose [None]
  - Sinus tachycardia [None]
  - Partial seizures [None]
  - Pneumonia aspiration [None]
  - Status epilepticus [None]
  - Coma [None]
  - Paralysis flaccid [None]
  - Brain death [None]
  - Areflexia [None]
  - Mydriasis [None]
